FAERS Safety Report 7572298-2 (Version None)
Quarter: 2011Q2

REPORT INFORMATION
  Report Type: 
  Country: None (occurrence: None)
  Receive Date: 20110624
  Receipt Date: 20110616
  Transmission Date: 20111010
  Serious: Yes (Other)
  Sender: FDA-Public Use
  Company Number: PHHY2011BR53393

PATIENT
  Sex: Male

DRUGS (1)
  1. RITALIN LA [Suspect]
     Dosage: UNK UKN, UNK

REACTIONS (3)
  - OPPOSITIONAL DEFIANT DISORDER [None]
  - DECREASED APPETITE [None]
  - AGGRESSION [None]
